FAERS Safety Report 8158037-5 (Version None)
Quarter: 2012Q1

REPORT INFORMATION
  Report Type: 
  Country: None (occurrence: None)
  Receive Date: 20120222
  Receipt Date: 20120216
  Transmission Date: 20120608
  Serious: Yes (Other)
  Sender: FDA-Public Use
  Company Number: PHHY2011GR110548

PATIENT

DRUGS (1)
  1. NEORAL [Suspect]
     Indication: RENAL TRANSPLANT

REACTIONS (2)
  - HYPERBILIRUBINAEMIA [None]
  - CHOLESTASIS [None]
